FAERS Safety Report 9594999 (Version 2)
Quarter: 2013Q4

REPORT INFORMATION
  Report Type: Spontaneous
  Country: US (occurrence: US)
  Receive Date: 20131004
  Receipt Date: 20131004
  Transmission Date: 20140711
  Serious: No
  Sender: FDA-Public Use
  Company Number: US-PURDUE-USA-2012-0093968

PATIENT
  Age: 31 Year
  Sex: Female
  Weight: 86.17 kg

DRUGS (3)
  1. BUTRANS [Suspect]
     Indication: PAIN
     Dosage: 10 MCG, UNK
     Route: 062
     Dates: start: 20120826
  2. FISH OIL [Concomitant]
     Indication: PRODUCT USED FOR UNKNOWN INDICATION
     Dosage: 4000 MG, DAILY
  3. ELAVIL                             /00002202/ [Concomitant]
     Indication: PRODUCT USED FOR UNKNOWN INDICATION
     Dosage: 50 MG, HS

REACTIONS (8)
  - Drug withdrawal syndrome [Recovered/Resolved]
  - Incorrect route of drug administration [Unknown]
  - Device leakage [Unknown]
  - Hypoaesthesia oral [Unknown]
  - Affect lability [Recovered/Resolved]
  - Tension [Recovered/Resolved]
  - Discomfort [Recovered/Resolved]
  - Pain [Recovered/Resolved]
